FAERS Safety Report 7411888-4 (Version None)
Quarter: 2011Q2

REPORT INFORMATION
  Report Type: 
  Country: None (occurrence: None)
  Receive Date: 20110413
  Receipt Date: 20110408
  Transmission Date: 20111010
  Serious: Yes (Hospitalization)
  Sender: FDA-Public Use
  Company Number: FR-SANOFI-AVENTIS-2011SA022001

PATIENT
  Age: 33 Year
  Sex: Female

DRUGS (1)
  1. STILNOX [Suspect]
     Route: 048
     Dates: start: 20110301, end: 20110301

REACTIONS (4)
  - OVERDOSE [None]
  - SPEECH DISORDER [None]
  - APHASIA [None]
  - DISORIENTATION [None]
